FAERS Safety Report 9052562 (Version 1)
Quarter: 2013Q1

REPORT INFORMATION
  Report Type: Spontaneous
  Country: FR (occurrence: FR)
  Receive Date: 20130207
  Receipt Date: 20130207
  Transmission Date: 20140127
  Serious: Yes (Hospitalization)
  Sender: FDA-Public Use
  Company Number: FR-BRISTOL-MYERS SQUIBB COMPANY-17330135

PATIENT
  Age: 53 Year
  Sex: Male

DRUGS (11)
  1. ONGLYZA TABS [Suspect]
     Indication: TYPE 2 DIABETES MELLITUS
     Route: 048
     Dates: start: 20110604, end: 20121008
  2. CRESTOR [Suspect]
     Route: 048
  3. AMLODIPINE BESILATE + OLMESARTAN MEDOXOMIL [Concomitant]
     Indication: HYPERTENSION
     Dosage: 1DF = OLMESARTAN 40 MG, AMLODIPINE 5 MG)
  4. MEDIATENSYL [Concomitant]
     Indication: HYPERTENSION
     Route: 048
  5. INEXIUM [Concomitant]
  6. LASILIX [Concomitant]
     Indication: HYPERTENSION
     Route: 048
  7. STAGID [Concomitant]
     Indication: TYPE 2 DIABETES MELLITUS
     Route: 048
  8. ALDACTONE [Concomitant]
     Indication: HYPERTENSION
     Route: 048
  9. LANTUS [Concomitant]
     Indication: TYPE 2 DIABETES MELLITUS
     Dosage: 1DF = 40 U/D SC
     Route: 058
     Dates: start: 2008
  10. NOVORAPID [Concomitant]
     Indication: TYPE 2 DIABETES MELLITUS
     Dosage: 1DF = MORNING, 20 UNITS AT MIDDAY, AND 30 UNITS IN THE EVENING
     Route: 058
  11. BIPERIDYS [Concomitant]

REACTIONS (4)
  - Diabetes mellitus inadequate control [Not Recovered/Not Resolved]
  - Nephrotic syndrome [Unknown]
  - Renal failure [Not Recovered/Not Resolved]
  - Hypertension [Not Recovered/Not Resolved]
